FAERS Safety Report 6260630-1 (Version None)
Quarter: 2009Q3

REPORT INFORMATION
  Report Type: 
  Country: None (occurrence: None)
  Receive Date: 20090706
  Receipt Date: 20090622
  Transmission Date: 20100115
  Serious: No
  Sender: FDA-Public Use
  Company Number: 2009-199304-NL

PATIENT
  Age: 45 Year
  Sex: Male

DRUGS (5)
  1. MIRTAZAPINE [Suspect]
     Dosage: 30 MG
  2. BUPROPION [Suspect]
     Dosage: 150 MG
  3. QUETIAPINE FUMARATE [Suspect]
     Dosage: 200 MG
  4. TRIMEPRAZINE TAB [Suspect]
     Dosage: 30 MG
  5. DISULFIRAM [Suspect]
     Dosage: 200 MG

REACTIONS (2)
  - ALANINE AMINOTRANSFERASE INCREASED [None]
  - GAMMA-GLUTAMYLTRANSFERASE INCREASED [None]
